FAERS Safety Report 25079866 (Version 2)
Quarter: 2025Q2

REPORT INFORMATION
  Report Type: Spontaneous
  Country: FR (occurrence: FR)
  Receive Date: 20250314
  Receipt Date: 20250520
  Transmission Date: 20250716
  Serious: Yes (Hospitalization, Other)
  Sender: BRISTOL-MYERS SQUIBB COMPANY
  Company Number: FR-BRISTOL-MYERS SQUIBB COMPANY-2024-152504

PATIENT
  Age: 87 Year
  Sex: Female
  Weight: 50 kg

DRUGS (3)
  1. ELIQUIS [Suspect]
     Active Substance: APIXABAN
     Indication: Product used for unknown indication
     Dates: end: 20240719
  2. KARDEGIC [Suspect]
     Active Substance: ASPIRIN DL-LYSINE
     Indication: Product use in unapproved indication
     Dates: start: 20231205, end: 20240719
  3. INCB-099280 [Suspect]
     Active Substance: INCB-099280
     Indication: Squamous cell carcinoma of skin
     Dosage: 600 MG BID
     Route: 048
     Dates: start: 20231205, end: 20240719

REACTIONS (3)
  - Gastrointestinal haemorrhage [Recovered/Resolved]
  - Haemoglobin decreased [Unknown]
  - Ulcer [Unknown]

NARRATIVE: CASE EVENT DATE: 20240719
